FAERS Safety Report 6311496-2 (Version None)
Quarter: 2009Q3

REPORT INFORMATION
  Report Type: 
  Country: None (occurrence: None)
  Receive Date: 20090813
  Receipt Date: 20090813
  Transmission Date: 20100115
  Serious: Yes (Disabling, Other)
  Sender: FDA-Public Use
  Company Number: None

PATIENT
  Age: 83 Year
  Sex: Female
  Weight: 38.5557 kg

DRUGS (3)
  1. METOPROLOL TARTRATE [Suspect]
     Indication: HYPERTENSION
     Dosage: 12/09/08 - QTY 90 1/04/09 - QTY 270
     Dates: start: 20081209
  2. METOPROLOL TARTRATE [Suspect]
     Indication: HYPERTENSION
     Dosage: 12/09/08 - QTY 90 1/04/09 - QTY 270
     Dates: start: 20090104
  3. METOPROLOL TARTRATE [Suspect]

REACTIONS (6)
  - CONFUSIONAL STATE [None]
  - DEMENTIA [None]
  - MEDICATION ERROR [None]
  - OVERDOSE [None]
  - REPETITIVE SPEECH [None]
  - STEREOTYPY [None]
